FAERS Safety Report 9256163 (Version 1)
Quarter: 2013Q2

REPORT INFORMATION
  Report Type: Spontaneous
  Country: US (occurrence: US)
  Receive Date: 20130425
  Receipt Date: 20130425
  Transmission Date: 20140414
  Serious: Yes (Hospitalization)
  Sender: FDA-Public Use
  Company Number: US-AMGEN-USASP2012048598

PATIENT
  Age: 33 Year
  Sex: Female

DRUGS (7)
  1. NEULASTA [Suspect]
     Indication: CHEMOTHERAPY
     Dates: start: 20120713
  2. RITUXIMAB [Concomitant]
     Dosage: UNK
     Dates: start: 20120708, end: 20120712
  3. ETOPOSIDE [Concomitant]
     Dosage: UNK
     Dates: start: 20120708, end: 20120712
  4. PREDNISONE [Concomitant]
     Dosage: UNK
     Dates: start: 20120708, end: 20120712
  5. ONCOVIN [Concomitant]
     Dosage: UNK
     Dates: start: 20120708, end: 20120712
  6. CYCLOPHOSPHAMIDE [Concomitant]
     Dosage: UNK
     Dates: start: 20120708, end: 20120712
  7. DOXORUBICIN [Concomitant]
     Dosage: UNK
     Dates: start: 20120708, end: 20120712

REACTIONS (1)
  - Bone pain [Recovered/Resolved]
